FAERS Safety Report 7946871-3 (Version None)
Quarter: 2011Q4

REPORT INFORMATION
  Report Type: 
  Country: None (occurrence: None)
  Receive Date: 20111129
  Receipt Date: 20111118
  Transmission Date: 20120403
  Serious: Yes (Hospitalization, Other)
  Sender: FDA-Public Use
  Company Number: PHEH2011US04597

PATIENT
  Sex: Male
  Weight: 61.224 kg

DRUGS (21)
  1. NORCO [Concomitant]
     Indication: PAIN
     Dosage: 1 DF, Q6H
     Route: 048
     Dates: start: 20110816, end: 20110826
  2. SINEMET CR [Concomitant]
     Dosage: 1 DF, QID
     Route: 048
     Dates: start: 20110816
  3. VITAMIN D [Concomitant]
     Dosage: 1000 U, DAILY
     Route: 048
  4. LAMICTAL [Concomitant]
     Dosage: 100 MG, BID
     Route: 048
  5. GILENYA [Suspect]
     Indication: MULTIPLE SCLEROSIS
     Dosage: 0.5 MG, QD
     Route: 048
     Dates: start: 20110503, end: 20110806
  6. KEPPRA [Concomitant]
     Dosage: 2 DF, BID
     Route: 048
     Dates: start: 20110816
  7. LOVENOX [Concomitant]
     Dosage: 40 MG, DAILY
     Route: 058
  8. ALBUMIN (HUMAN) [Concomitant]
     Dosage: 50 G, QD
     Route: 042
  9. STEROIDS [Concomitant]
     Dosage: UNK UKN, UNK
  10. DITROPAN [Concomitant]
     Dosage: 5 MG, BID
     Route: 048
     Dates: start: 20110805
  11. NORCO [Concomitant]
     Dosage: 1 DF, PRN
     Route: 048
     Dates: start: 20110816
  12. EXCEDRIN (MIGRAINE) [Concomitant]
     Dosage: 1 DF, UNK
     Route: 048
  13. OMEPRAZOLE [Concomitant]
     Dosage: 20 MG, DAILY
     Route: 048
  14. PROTONIX [Concomitant]
     Dosage: 40 MG, PRN
     Route: 048
  15. CALCIUM GLUCONATE [Concomitant]
     Dosage: 3 G, PRN
     Route: 042
  16. PERI-COLACE [Concomitant]
     Dosage: 1 DF, PRN
     Route: 048
  17. CYANOCOBALAMIN [Concomitant]
     Dosage: 1000 UG, QMO
     Dates: start: 20110816
  18. ALBUMIN (HUMAN) [Concomitant]
     Dosage: 100 G, QD
     Route: 042
  19. PROTONIX [Concomitant]
     Dosage: 40 MG, DAILY
     Route: 048
  20. SODIUM CHLORIDE [Concomitant]
     Dosage: 500 ML, PRN
     Route: 042
  21. FOLVITE [Concomitant]
     Dosage: 1 MG, UNK
     Route: 048

REACTIONS (33)
  - MUSCULAR WEAKNESS [None]
  - HYPOKALAEMIA [None]
  - NYSTAGMUS [None]
  - DEPRESSION [None]
  - CONVULSION [None]
  - DEVICE RELATED INFECTION [None]
  - GAIT DISTURBANCE [None]
  - SPINAL CORD DISORDER [None]
  - HEART RATE INCREASED [None]
  - BLOOD PRESSURE DECREASED [None]
  - BALANCE DISORDER [None]
  - MALAISE [None]
  - URINARY INCONTINENCE [None]
  - HAEMATOCRIT DECREASED [None]
  - TREMOR [None]
  - HEADACHE [None]
  - MICTURITION URGENCY [None]
  - DYSARTHRIA [None]
  - VITAMIN D DEFICIENCY [None]
  - EMOTIONAL DISTRESS [None]
  - FATIGUE [None]
  - ATAXIA [None]
  - FALL [None]
  - ANXIETY [None]
  - PYREXIA [None]
  - ASTHENIA [None]
  - ADRENAL INSUFFICIENCY [None]
  - DRY SKIN [None]
  - WHITE BLOOD CELL COUNT DECREASED [None]
  - LOSS OF CONSCIOUSNESS [None]
  - MULTIPLE SCLEROSIS RELAPSE [None]
  - URINARY RETENTION [None]
  - URINARY TRACT INFECTION [None]
